FAERS Safety Report 6183367-6 (Version None)
Quarter: 2009Q2

REPORT INFORMATION
  Report Type: 
  Country: None (occurrence: None)
  Receive Date: 20090506
  Receipt Date: 20090422
  Transmission Date: 20091009
  Serious: Yes (Death, Life-Threatening, Hospitalization)
  Sender: FDA-Public Use
  Company Number: 2008JP005858

PATIENT
  Age: 49 Year
  Sex: Female
  Weight: 56 kg

DRUGS (16)
  1. PROGRAF [Suspect]
     Indication: BONE MARROW TRANSPLANT
     Dosage: 0.4 MG,  UID/QD, IV NOS
     Route: 042
     Dates: start: 20071017, end: 20071225
  2. METHOTREXATE FORMULATION  UNKNOWN [Concomitant]
  3. INSULIN (INSULIN) INJECTION [Concomitant]
  4. FOSCOVIR (FOSCARNET SODIUM) INJECTION [Concomitant]
  5. HYPERALIMENTATION PREPARATIONS INJECTION [Concomitant]
  6. CYCLOPHOSPHAMIDE (CYCLOPHOSPHAMIDE) FORMULATION UNKNOWN [Concomitant]
  7. HYDROXYDAUNORUBICIN FORMULATION UNKNOWN [Concomitant]
  8. ONCOVIN (VINCRISTINE SULFATE) FORMULATION UNKNOWN [Concomitant]
  9. PREDNISOLONE [Concomitant]
  10. VANCOMYCIN [Concomitant]
  11. SOLU-MEDROL [Concomitant]
  12. CEFTAZIDIME [Concomitant]
  13. DENOSINE (GANCICLOVIR) INJECTION [Concomitant]
  14. PRODIF (FOSFLUCONAZOLE) INJECTION [Concomitant]
  15. MAXIPIME [Concomitant]
  16. SANDIMMUN INJECTION [Concomitant]

REACTIONS (14)
  - ANOREXIA [None]
  - ASCITES [None]
  - FEBRILE NEUTROPENIA [None]
  - HEPATIC FAILURE [None]
  - HEPATITIS VIRAL [None]
  - HYPERGLYCAEMIA [None]
  - IMPAIRED INSULIN SECRETION [None]
  - MALAISE [None]
  - MALNUTRITION [None]
  - PLEURAL EFFUSION [None]
  - PNEUMONIA CYTOMEGALOVIRAL [None]
  - PNEUMONIA FUNGAL [None]
  - PULMONARY HAEMORRHAGE [None]
  - THIRST [None]
